FAERS Safety Report 9272326 (Version 1)
Quarter: 2013Q2

REPORT INFORMATION
  Report Type: Spontaneous
  Country: US (occurrence: US)
  Receive Date: 20130506
  Receipt Date: 20130506
  Transmission Date: 20140414
  Serious: No
  Sender: FDA-Public Use
  Company Number: US-ASTRAZENECA-2013SE21574

PATIENT
  Age: 73 Year
  Sex: Male

DRUGS (4)
  1. PRILOSEC OTC [Suspect]
     Route: 048
     Dates: start: 20130314, end: 20130321
  2. ZOCOR [Concomitant]
  3. LEXAPRO [Concomitant]
  4. COUMADIN [Concomitant]

REACTIONS (3)
  - Retching [Recovered/Resolved]
  - Dysgeusia [Recovered/Resolved]
  - Incorrect dose administered [Unknown]
